FAERS Safety Report 9785184 (Version 1)
Quarter: 2013Q4

REPORT INFORMATION
  Report Type: Spontaneous
  Country: US (occurrence: US)
  Receive Date: 20131227
  Receipt Date: 20131227
  Transmission Date: 20140711
  Serious: No
  Sender: FDA-Public Use
  Company Number: US-009507513-1312USA011364

PATIENT
  Age: 24 Year
  Sex: Female
  Weight: 64.4 kg

DRUGS (1)
  1. IMPLANON [Suspect]
     Indication: CONTRACEPTION
     Dosage: 1 DF, UNK; 1 ROD UPTO THREE YEARS; UNDER THE SKIN OF LEEFT ARM
     Route: 059
     Dates: start: 201310

REACTIONS (10)
  - Chest pain [Unknown]
  - Headache [Unknown]
  - Mood swings [Unknown]
  - Loss of libido [Unknown]
  - Alopecia [Unknown]
  - Hot flush [Unknown]
  - Insomnia [Unknown]
  - Increased appetite [Unknown]
  - Amenorrhoea [Unknown]
  - Oropharyngeal pain [Unknown]
